FAERS Safety Report 6709360-X (Version None)
Quarter: 2010Q2

REPORT INFORMATION
  Report Type: 
  Country: None (occurrence: None)
  Receive Date: 20100504
  Receipt Date: 20100420
  Transmission Date: 20101027
  Serious: Yes (Hospitalization)
  Sender: FDA-Public Use
  Company Number: PHHY2010DE19234

PATIENT
  Sex: Male
  Weight: 106 kg

DRUGS (9)
  1. RASILEZ HCT [Suspect]
     Indication: HYPERTENSION
     Dosage: 150/12.5 MG PER DAY
     Route: 048
     Dates: start: 20090302
  2. NO TREATMENT RECEIVED NOMED [Suspect]
  3. ASPIRIN [Concomitant]
     Dosage: 100 MG, PER DAY
     Dates: start: 19910219
  4. AMLODIPINE [Concomitant]
     Dosage: 5 MG, PER DAY
     Route: 048
     Dates: start: 20051020
  5. METOPROLOL [Concomitant]
     Dosage: 47.5 MG, PER DAY
     Route: 048
     Dates: start: 20100323
  6. PRAVASTATIN [Concomitant]
     Dosage: 40 MG, PER DAY
     Route: 048
     Dates: start: 20090724
  7. ATACAND [Concomitant]
     Dosage: 8 MG, PER DAY
     Route: 048
     Dates: start: 20100315
  8. BISOPROLOL FUMARATE [Concomitant]
     Dosage: 5 MG, PER DAY
     Route: 048
     Dates: start: 19950518, end: 20100222
  9. CLOPIDOGREL [Concomitant]
     Dosage: 75 MG, PER DAY
     Route: 048
     Dates: start: 20090918, end: 20091018

REACTIONS (11)
  - AMAUROSIS FUGAX [None]
  - ANGINA UNSTABLE [None]
  - BRADYCARDIA [None]
  - CATHETERISATION CARDIAC [None]
  - CORONARY ANGIOPLASTY [None]
  - CORONARY ARTERIAL STENT INSERTION [None]
  - CORONARY ARTERY DISEASE [None]
  - CORONARY ARTERY STENOSIS [None]
  - HYPERTENSIVE CRISIS [None]
  - INFARCTION [None]
  - TRANSIENT ISCHAEMIC ATTACK [None]
